FAERS Safety Report 11234222 (Version 1)
Quarter: 2015Q3

REPORT INFORMATION
  Report Type: Report from Study
  Country: BR (occurrence: BR)
  Receive Date: 20150702
  Receipt Date: 20150702
  Transmission Date: 20151125
  Serious: Yes (Hospitalization)
  Sender: FDA-Public Use
  Company Number: BR-ROCHE-1602200

PATIENT
  Age: 31 Year
  Sex: Male

DRUGS (5)
  1. TOBI [Concomitant]
     Active Substance: TOBRAMYCIN
     Indication: CYSTIC FIBROSIS
  2. URSACOL [Concomitant]
     Active Substance: URSODIOL
     Indication: CYSTIC FIBROSIS
  3. SALBUTAMOL [Concomitant]
     Active Substance: ALBUTEROL
     Indication: CYSTIC FIBROSIS
  4. PULMOZYME [Suspect]
     Active Substance: DORNASE ALFA
     Indication: CYSTIC FIBROSIS
     Route: 065
  5. ENZYMES [Concomitant]
     Indication: CYSTIC FIBROSIS

REACTIONS (1)
  - Cystic fibrosis [Unknown]
